FAERS Safety Report 7046295-X (Version None)
Quarter: 2010Q4

REPORT INFORMATION
  Report Type: 
  Country: None (occurrence: None)
  Receive Date: 20101014
  Receipt Date: 20101004
  Transmission Date: 20110411
  Serious: Yes (Other)
  Sender: FDA-Public Use
  Company Number: B0677534A

PATIENT
  Age: 78 Year
  Sex: Male

DRUGS (5)
  1. ARIXTRA [Suspect]
     Indication: PRODUCT USED FOR UNKNOWN INDICATION
     Route: 058
     Dates: start: 20091108, end: 20091113
  2. ASPEGIC 1000 [Suspect]
     Indication: PRODUCT USED FOR UNKNOWN INDICATION
     Route: 042
     Dates: start: 20091109, end: 20091109
  3. AMIODARONE HCL [Concomitant]
     Route: 065
  4. ATARAX [Concomitant]
     Route: 065
  5. KARDEGIC [Concomitant]
     Route: 065

REACTIONS (1)
  - PANCYTOPENIA [None]
